FAERS Safety Report 6522829-6 (Version None)
Quarter: 2009Q4

REPORT INFORMATION
  Report Type: 
  Country: None (occurrence: None)
  Receive Date: 20091230
  Receipt Date: 20091229
  Transmission Date: 20100525
  Serious: Yes (Life-Threatening, Hospitalization)
  Sender: FDA-Public Use
  Company Number: US-GILEAD-2009-0025771

PATIENT
  Sex: Female

DRUGS (20)
  1. LETAIRIS [Suspect]
     Indication: PULMONARY ARTERIAL HYPERTENSION
     Route: 048
     Dates: start: 20090421, end: 20091201
  2. ALBUTEROL [Concomitant]
     Indication: ASTHMA
  3. SPIRIVA [Concomitant]
     Indication: ASTHMA
  4. XOPENEX [Concomitant]
     Indication: ASTHMA
  5. ADVAIR DISKUS 100/50 [Concomitant]
     Indication: ASTHMA
  6. THEO-DUR [Concomitant]
     Indication: ASTHMA
  7. SINGULAIR [Concomitant]
     Indication: ASTHMA
  8. NASONEX [Concomitant]
     Indication: ASTHMA
  9. TAVIST [Concomitant]
     Indication: NASAL CONGESTION
  10. BYETTA [Concomitant]
     Indication: DIABETES MELLITUS
  11. PREDNISONE [Concomitant]
     Indication: ASTHMA
  12. DIGOXIN [Concomitant]
     Indication: CARDIAC DISORDER
  13. TIAZAC [Concomitant]
     Indication: HYPERTENSION
  14. LASIX [Concomitant]
     Indication: OEDEMA
  15. K-DUR [Concomitant]
     Indication: SUPPLEMENTATION THERAPY
  16. CELEXA [Concomitant]
     Indication: DEPRESSION
  17. REMERON [Concomitant]
     Indication: DEPRESSION
  18. ATIVAN [Concomitant]
     Indication: ANXIETY
  19. ASPIRIN [Concomitant]
     Indication: CORONARY ARTERY DISEASE
  20. FOSAMAX [Concomitant]
     Indication: OSTEOPOROSIS

REACTIONS (1)
  - CHRONIC OBSTRUCTIVE PULMONARY DISEASE [None]
